FAERS Safety Report 19000793 (Version 2)
Quarter: 2021Q1

REPORT INFORMATION
  Report Type: Spontaneous
  Country: FR (occurrence: FR)
  Receive Date: 20210311
  Receipt Date: 20210317
  Transmission Date: 20210420
  Serious: Yes (Life-Threatening, Hospitalization, Other)
  Sender: FDA-Public Use
  Company Number: FR-GLAXOSMITHKLINE-FR2021GSK059877

PATIENT
  Sex: Male
  Weight: 100 kg

DRUGS (14)
  1. DAIVOBET [Suspect]
     Active Substance: BETAMETHASONE DIPROPIONATE\CALCIPOTRIENE
     Indication: PSORIASIS
     Dosage: UNK
     Dates: start: 20161219
  2. METHOTREXATE. [Suspect]
     Active Substance: METHOTREXATE
     Indication: PSORIASIS
     Dosage: 15 MG, Z (EVER WEEK)
     Route: 048
     Dates: start: 2013
  3. STELARA [Suspect]
     Active Substance: USTEKINUMAB
     Dosage: 45 MG, Z (ONCE EVERY 12 WEEKS)
     Route: 058
     Dates: start: 20170226
  4. HUMIRA [Suspect]
     Active Substance: ADALIMUMAB
     Indication: PSORIASIS
     Dosage: 80 MG, Z (EVERY WEEK)
     Route: 058
     Dates: start: 20130531
  5. DEXERYL (GLYCEROL + LIQUID PARAFFIN + VASELINE) [Suspect]
     Active Substance: GLYCERIN\MINERAL OIL\PETROLATUM
     Indication: PSORIASIS
     Dosage: UNK
     Dates: start: 20161219
  6. STELARA [Suspect]
     Active Substance: USTEKINUMAB
     Indication: PSORIASIS
     Dosage: 45 MG, Z (ONCE EVERY 4 WEEKS)
     Route: 058
     Dates: start: 20170126
  7. STELARA [Suspect]
     Active Substance: USTEKINUMAB
     Dosage: 45 MG, Z (ONCE EVERY 14 WEEKS)
     Route: 048
     Dates: start: 20180110
  8. DAIVOBET [Suspect]
     Active Substance: BETAMETHASONE DIPROPIONATE\CALCIPOTRIENE
     Dosage: UNK
     Dates: start: 20190408
  9. SEBIPROX [Suspect]
     Active Substance: CICLOPIROX OLAMINE
     Dosage: UNK
     Dates: start: 20180108
  10. HUMIRA [Suspect]
     Active Substance: ADALIMUMAB
     Dosage: 80 MG, Z (ONCE AT 2 WEEK)
     Route: 058
     Dates: start: 20130630
  11. CLARELUX [Suspect]
     Active Substance: CLOBETASOL PROPIONATE
     Dosage: UNK
     Dates: start: 20180108
  12. SEBIPROX [Suspect]
     Active Substance: CICLOPIROX OLAMINE
     Indication: PSORIASIS
     Dosage: UNK
     Dates: start: 20161219
  13. ACITRETIN. [Suspect]
     Active Substance: ACITRETIN
     Indication: PSORIASIS
     Dosage: UNK
  14. CLARELUX [Suspect]
     Active Substance: CLOBETASOL PROPIONATE
     Indication: PSORIASIS
     Dosage: UNK
     Dates: start: 20161219

REACTIONS (3)
  - Myocardial infarction [Recovered/Resolved]
  - Type 2 diabetes mellitus [Recovering/Resolving]
  - Angioplasty [Recovered/Resolved]

NARRATIVE: CASE EVENT DATE: 2018
